FAERS Safety Report 4482081-2 (Version None)
Quarter: 2004Q4

REPORT INFORMATION
  Report Type: 
  Country: None (occurrence: None)
  Receive Date: 20041020
  Receipt Date: 20041005
  Transmission Date: 20050328
  Serious: Yes (Hospitalization)
  Sender: FDA-Public Use
  Company Number: US_0409105406

PATIENT
  Age: 65 Year
  Sex: Male

DRUGS (10)
  1. PEMETREXED [Suspect]
     Indication: MESOTHELIOMA
     Dosage: 500 MG/M2 OTHER
     Route: 050
     Dates: start: 20040826
  2. GEMCITABINE HYDROCHLORIDE-IV (GEMCITABINE) [Suspect]
     Indication: MESOTHELIOMA
     Dosage: 1250 MG/M2 OTHER
     Route: 050
     Dates: start: 20040826
  3. VITAMIN B-12 [Concomitant]
  4. FOLIC ACID [Concomitant]
  5. ZOCOR [Concomitant]
  6. GLUCOSAMINE [Concomitant]
  7. VITAMIN E (HERBAL OIL NOS) [Concomitant]
  8. ADVAIR [Concomitant]
  9. COZAAR [Concomitant]
  10. PERCOCET [Concomitant]

REACTIONS (20)
  - ASTHENIA [None]
  - BLOOD GLUCOSE INCREASED [None]
  - CEREBELLAR SYNDROME [None]
  - CHRONIC INFLAMMATORY DEMYELINATING POLYRADICULONEUROPATHY [None]
  - CONDITION AGGRAVATED [None]
  - COORDINATION ABNORMAL [None]
  - DIFFICULTY IN WALKING [None]
  - FALL [None]
  - GAIT DISTURBANCE [None]
  - GRAFT VERSUS HOST DISEASE [None]
  - HAEMATOCRIT DECREASED [None]
  - HYPOAESTHESIA [None]
  - MYOCLONUS [None]
  - NAUSEA [None]
  - PCO2 INCREASED [None]
  - PERIPHERAL MOTOR NEUROPATHY [None]
  - PERIPHERAL SENSORY NEUROPATHY [None]
  - RASH [None]
  - VIBRATION TEST ABNORMAL [None]
  - WHITE BLOOD CELLS URINE POSITIVE [None]
